FAERS Safety Report 14681652 (Version 1)
Quarter: 2018Q1

REPORT INFORMATION
  Report Type: Spontaneous
  Country: DE (occurrence: DE)
  Receive Date: 20180326
  Receipt Date: 20180326
  Transmission Date: 20180509
  Serious: Yes (Other)
  Sender: FDA-Public Use
  Company Number: DE-PFIZER INC-2018121053

PATIENT
  Age: 56 Year
  Sex: Male

DRUGS (1)
  1. CHAMPIX [Suspect]
     Active Substance: VARENICLINE TARTRATE
     Dosage: UNK
     Dates: start: 20180312, end: 20180316

REACTIONS (2)
  - Meningitis [Unknown]
  - Back pain [Unknown]

NARRATIVE: CASE EVENT DATE: 201803
